FAERS Safety Report 6136350-0 (Version None)
Quarter: 2009Q1

REPORT INFORMATION
  Report Type: 
  Country: None (occurrence: None)
  Receive Date: 20090330
  Receipt Date: 20090324
  Transmission Date: 20090719
  Serious: Yes (Hospitalization)
  Sender: FDA-Public Use
  Company Number: JP-BAYER-200910565BYL

PATIENT
  Age: 67 Year
  Sex: Female
  Weight: 44 kg

DRUGS (6)
  1. NEXAVAR [Suspect]
     Indication: RENAL CELL CARCINOMA STAGE IV
     Dosage: TOTAL DAILY DOSE: 800 MG  UNIT DOSE: 200 MG
     Route: 048
     Dates: start: 20090211, end: 20090219
  2. NEXAVAR [Suspect]
     Dosage: UNIT DOSE: 200 MG
     Route: 048
     Dates: start: 20090317
  3. THYRADIN S [Concomitant]
     Route: 048
     Dates: start: 20080402
  4. UREPEARL [Concomitant]
     Indication: PROPHYLAXIS
     Route: 061
     Dates: start: 20090211
  5. PARIET [Concomitant]
     Route: 048
     Dates: start: 20090219, end: 20090223
  6. LOXONIN [Concomitant]
     Route: 048
     Dates: start: 20090219

REACTIONS (2)
  - INTESTINAL ISCHAEMIA [None]
  - LOWER GASTROINTESTINAL HAEMORRHAGE [None]
